FAERS Safety Report 10079169 (Version 1)
Quarter: 2014Q2

REPORT INFORMATION
  Report Type: Spontaneous
  Country: US (occurrence: None)
  Receive Date: 20140414
  Receipt Date: 20140414
  Transmission Date: 20141212
  Serious: Yes (Other)
  Sender: FDA-Public Use
  Company Number: None

PATIENT
  Age: 52 Year
  Sex: 0

DRUGS (1)
  1. AFINITOR 5 MG NOVARTIS [Suspect]
     Indication: NEUROENDOCRINE TUMOUR
     Route: 048
     Dates: start: 201312

REACTIONS (4)
  - Stomatitis [None]
  - Rash [None]
  - Headache [None]
  - Epistaxis [None]
